FAERS Safety Report 5546740-2 (Version None)
Quarter: 2007Q4

REPORT INFORMATION
  Report Type: 
  Country: None (occurrence: None)
  Receive Date: 20071207
  Receipt Date: 20071207
  Transmission Date: 20080405
  Serious: Yes (Hospitalization, Other)
  Sender: FDA-Public Use
  Company Number: None

PATIENT
  Sex: Male
  Weight: 131 kg

DRUGS (10)
  1. CYTARABINE [Suspect]
     Dosage: 4800 MG
  2. DEXAMETHASONE TAB [Suspect]
     Dosage: 100 MG
  3. ETOPOSIDE [Suspect]
     Dosage: 380 MG
  4. G-CSF (FILGRASTIM, AMGEN) [Suspect]
     Dosage: 10710 MG
  5. IFOSFAMIDE [Suspect]
     Dosage: 9500 MG
  6. LEUCOVORIN CALCIUM [Suspect]
     Dosage: 150 MG
  7. MESNA [Suspect]
     Dosage: 7500 MG
  8. METHOTREXATE [Suspect]
     Dosage: 3390 MG
  9. RITUXIMAB (MOAB C2B8 ANTI CD20, CHIMERIC) [Suspect]
     Dosage: 1800 MG
  10. VINCRISTINE SULFATE [Suspect]
     Dosage: 2 MG

REACTIONS (39)
  - ABDOMINAL DISTENSION [None]
  - ASCITES [None]
  - ASTHENIA [None]
  - ATELECTASIS [None]
  - ATRIOVENTRICULAR BLOCK [None]
  - BLOOD CULTURE POSITIVE [None]
  - BLOOD LACTIC ACID INCREASED [None]
  - BLOOD URIC ACID INCREASED [None]
  - BRADYCARDIA [None]
  - CANDIDIASIS [None]
  - CARDIAC ARREST [None]
  - CARDIOMEGALY [None]
  - CHEST PAIN [None]
  - DEPRESSED LEVEL OF CONSCIOUSNESS [None]
  - DIARRHOEA HAEMORRHAGIC [None]
  - DYSPNOEA [None]
  - ELECTROLYTE IMBALANCE [None]
  - ENTEROCOCCAL INFECTION [None]
  - GASTRIC ULCER [None]
  - GASTROINTESTINAL HAEMORRHAGE [None]
  - GASTROOESOPHAGEAL REFLUX DISEASE [None]
  - GENERALISED OEDEMA [None]
  - HICCUPS [None]
  - HYPERTENSION [None]
  - HYPOXIA [None]
  - ILEUS [None]
  - KLEBSIELLA INFECTION [None]
  - NAUSEA [None]
  - NEUTROPENIA [None]
  - OESOPHAGITIS [None]
  - PERICARDIAL EFFUSION [None]
  - PLEURAL EFFUSION [None]
  - PNEUMONIA [None]
  - SALIVARY HYPERSECRETION [None]
  - SMALL INTESTINAL OBSTRUCTION [None]
  - TACHYCARDIA [None]
  - TACHYPNOEA [None]
  - URINARY TRACT INFECTION PSEUDOMONAL [None]
  - VOMITING [None]
